FAERS Safety Report 9289254 (Version 2)
Quarter: 2013Q2

REPORT INFORMATION
  Report Type: Spontaneous
  Country: US (occurrence: US)
  Receive Date: 20130514
  Receipt Date: 20130620
  Transmission Date: 20140414
  Serious: Yes (Death, Other)
  Sender: FDA-Public Use
  Company Number: US-009507513-1305USA006742

PATIENT
  Age: 76 Year
  Sex: Female

DRUGS (1)
  1. EMEND [Suspect]
     Route: 048

REACTIONS (1)
  - Neoplasm malignant [Fatal]
